FAERS Safety Report 9056108 (Version 1)
Quarter: 2013Q1

REPORT INFORMATION
  Report Type: Spontaneous
  Country: US (occurrence: US)
  Receive Date: 20130205
  Receipt Date: 20130205
  Transmission Date: 20140127
  Serious: Yes (Hospitalization)
  Sender: FDA-Public Use
  Company Number: US-RANBAXY-2013US-64891

PATIENT
  Age: 51 Year
  Sex: Male

DRUGS (5)
  1. MORPHINE [Suspect]
     Indication: PAIN
     Dosage: 75 MG, TID
     Route: 048
     Dates: start: 20120719
  2. RIFAMPICIN [Interacting]
     Indication: ENDOCARDITIS
     Dosage: 600 MG DAILY
     Route: 048
     Dates: start: 20120710
  3. HYDROMORPHONE [Concomitant]
     Indication: PAIN
     Dosage: UNK
     Route: 065
  4. OXYCODONE [Concomitant]
     Indication: PAIN
     Dosage: UNK
     Route: 065
  5. IV MORPHINE [Concomitant]
     Indication: PAIN
     Dosage: UNK
     Route: 042

REACTIONS (2)
  - Drug level decreased [Unknown]
  - Drug interaction [Unknown]
